FAERS Safety Report 9332668 (Version 1)
Quarter: 2013Q2

REPORT INFORMATION
  Report Type: Spontaneous
  Country: GB (occurrence: None)
  Receive Date: 20130603
  Receipt Date: 20130603
  Transmission Date: 20140414
  Serious: Yes (Other)
  Sender: FDA-Public Use
  Company Number: GB-022937

PATIENT
  Age: 8 Year
  Sex: 0

DRUGS (2)
  1. BUSULFAN [Suspect]
     Indication: PRODUCT USED FOR UNKNOWN INDICATION
     Dosage: 2-4 MG/KG/ DAY ON DAYS -9 TO -6 (1 IN 1 DAYS), UNKNOWN
  2. CYCLOPHOSPHAMIDE (CYCLOPHOSPHAMIDE) [Suspect]
     Indication: COMBINED IMMUNODEFICIENCY
     Dosage: ON DAYS -5 TO -1 (50 MG/KG, 1 IN 1 DAY) TRANSPLACENTAL

REACTIONS (3)
  - Tooth hypoplasia [None]
  - Tooth hypoplasia [None]
  - Toxicity to various agents [None]
